FAERS Safety Report 9165754 (Version 1)
Quarter: 2013Q1

REPORT INFORMATION
  Report Type: Spontaneous
  Country: FR (occurrence: FR)
  Receive Date: 20130315
  Receipt Date: 20130315
  Transmission Date: 20140127
  Serious: Yes (Death)
  Sender: FDA-Public Use
  Company Number: PHHY2013FR025335

PATIENT
  Age: 50 Year
  Sex: Female

DRUGS (10)
  1. AMOXICILLIN+CLAVULANATE SANDOZ [Suspect]
     Dosage: 1 G, DAILY DOSE
     Route: 042
     Dates: start: 20130217
  2. LUTERAN [Concomitant]
  3. PROZAC [Concomitant]
  4. LEXOMIDE [Concomitant]
  5. INEXIUM [Concomitant]
  6. FLAGYL [Concomitant]
     Dates: end: 20130216
  7. PRIMPERAN [Concomitant]
     Dates: start: 20130216, end: 20130216
  8. PERFALGAN [Concomitant]
     Dates: start: 20130216, end: 20130216
  9. MORPHINE [Concomitant]
     Dates: start: 20130216
  10. EUPANTOL [Concomitant]
     Dates: start: 20130216, end: 20130216

REACTIONS (4)
  - Cardio-respiratory arrest [Fatal]
  - Anaphylactic shock [Fatal]
  - Vomiting [Fatal]
  - Erythema [Fatal]
